FAERS Safety Report 6899399-6 (Version None)
Quarter: 2010Q3

REPORT INFORMATION
  Report Type: 
  Country: None (occurrence: None)
  Receive Date: 20100803
  Receipt Date: 20090609
  Transmission Date: 20110219
  Serious: No
  Sender: FDA-Public Use
  Company Number: US-PFIZER INC-2007096121

PATIENT
  Sex: Female
  Weight: 95.238 kg

DRUGS (9)
  1. LYRICA [Suspect]
     Indication: FIBROMYALGIA
     Dosage: 150 MG, 2X/DAY
     Dates: start: 20080101
  2. PRAVACHOL [Suspect]
     Indication: BLOOD CHOLESTEROL INCREASED
     Dosage: 20 MG, 1X/DAY
     Dates: start: 20080101, end: 20090501
  3. TAMOXIFEN [Concomitant]
  4. OXYBUTYNIN [Concomitant]
  5. ELAVIL [Concomitant]
  6. PRILOSEC [Concomitant]
  7. AMITIZA [Concomitant]
  8. ZOCOR [Concomitant]
  9. CYMBALTA [Concomitant]

REACTIONS (6)
  - ARTHRALGIA [None]
  - BLOOD CHOLESTEROL INCREASED [None]
  - ENERGY INCREASED [None]
  - MYALGIA [None]
  - OEDEMA PERIPHERAL [None]
  - PAIN IN EXTREMITY [None]
